FAERS Safety Report 18210077 (Version 1)
Quarter: 2020Q3

REPORT INFORMATION
  Report Type: Spontaneous
  Country: FR (occurrence: FR)
  Receive Date: 20200829
  Receipt Date: 20200829
  Transmission Date: 20201103
  Serious: Yes (Other)
  Sender: FDA-Public Use
  Company Number: FR-AUROBINDO-AUR-APL-2020-044845

PATIENT
  Age: 24 Year
  Sex: Female

DRUGS (7)
  1. ACICLOVIR [Suspect]
     Active Substance: ACYCLOVIR
     Indication: PULMONARY MUCORMYCOSIS
     Dosage: 10 MG/KG/DOSE/8H IV
     Route: 042
  2. AMPHOTERICIN B. [Suspect]
     Active Substance: AMPHOTERICIN B
     Indication: PULMONARY MUCORMYCOSIS
     Dosage: 7.5MG/KG/DOSE/24H IV
     Route: 042
  3. VALACICLOVIR [Suspect]
     Active Substance: VALACYCLOVIR HYDROCHLORIDE
     Indication: PROPHYLAXIS
     Dosage: UNK
     Route: 065
  4. ISAVUCONAZOLE [Suspect]
     Active Substance: ISAVUCONAZOLE
     Indication: PULMONARY MUCORMYCOSIS
     Dosage: 200 MG/DOSE/8H IV FOR 48H
     Route: 065
  5. AMPHOTERICIN B. [Suspect]
     Active Substance: AMPHOTERICIN B
     Dosage: 5MG/KG/DOSE/24H IV
     Route: 042
  6. ISAVUCONAZOLE [Suspect]
     Active Substance: ISAVUCONAZOLE
     Dosage: 200MG/24H
     Route: 065
  7. SULFAMETHOXAZOLE AND TRIMETHOPRIM [Suspect]
     Active Substance: SULFAMETHOXAZOLE\TRIMETHOPRIM
     Indication: PROPHYLAXIS
     Dosage: UNK
     Route: 065

REACTIONS (3)
  - Renal tubular injury [Unknown]
  - Hypokalaemia [Unknown]
  - Blood potassium decreased [Unknown]
